FAERS Safety Report 9618971 (Version 1)
Quarter: 2013Q4

REPORT INFORMATION
  Report Type: Spontaneous
  Country: US (occurrence: US)
  Receive Date: 20131014
  Receipt Date: 20131014
  Transmission Date: 20140711
  Serious: Yes (Other)
  Sender: FDA-Public Use
  Company Number: US-PFIZER INC-2013293657

PATIENT
  Age: 78 Year
  Sex: Female
  Weight: 83.45 kg

DRUGS (3)
  1. LYRICA [Suspect]
     Indication: NEUROPATHY PERIPHERAL
     Dosage: 150 MG, 2X/DAY
  2. RAMIPRIL [Concomitant]
     Indication: HYPERTENSION
     Dosage: 5MG IN MORNING AND 10MG IN NIGHT, 2X/DAY
  3. COUMADINE [Concomitant]
     Indication: CARDIAC DISORDER
     Dosage: UNK

REACTIONS (1)
  - Hearing impaired [Unknown]
